FAERS Safety Report 9909301 (Version 3)
Quarter: 2015Q3

REPORT INFORMATION
  Report Type: Spontaneous
  Country: US (occurrence: US)
  Receive Date: 20140219
  Receipt Date: 20150811
  Transmission Date: 20151125
  Serious: Yes (Hospitalization)
  Sender: FDA-Public Use
  Company Number: US-GILEAD-2011-0048597

PATIENT
  Age: 83 Year
  Sex: Female

DRUGS (11)
  1. NITROGLYCERIN. [Concomitant]
     Active Substance: NITROGLYCERIN
  2. PLAVIX [Concomitant]
     Active Substance: CLOPIDOGREL BISULFATE
  3. WELCHOL [Concomitant]
     Active Substance: COLESEVELAM HYDROCHLORIDE
  4. COUMADIN [Concomitant]
     Active Substance: WARFARIN SODIUM
  5. ASPIRIN. [Concomitant]
     Active Substance: ASPIRIN
  6. LETAIRIS [Suspect]
     Active Substance: AMBRISENTAN
     Indication: PULMONARY ARTERIAL HYPERTENSION
     Dosage: 5 MG, UNK
     Route: 048
     Dates: start: 20110902
  7. POTASSIUM [Concomitant]
     Active Substance: POTASSIUM
  8. REVATIO [Concomitant]
     Active Substance: SILDENAFIL CITRATE
  9. JANUVIA [Concomitant]
     Active Substance: SITAGLIPTIN PHOSPHATE
  10. DIGITEK [Concomitant]
     Active Substance: DIGOXIN
  11. LASIX [Concomitant]
     Active Substance: FUROSEMIDE

REACTIONS (2)
  - Peripheral swelling [Recovered/Resolved]
  - Dyspnoea [Recovered/Resolved]
